FAERS Safety Report 14812655 (Version 1)
Quarter: 2018Q2

REPORT INFORMATION
  Report Type: Spontaneous
  Country: GB (occurrence: GB)
  Receive Date: 20180425
  Receipt Date: 20180425
  Transmission Date: 20180711
  Serious: Yes (Life-Threatening, Hospitalization)
  Sender: FDA-Public Use
  Company Number: GB-GLAXOSMITHKLINE-GB2016GSK135673

PATIENT
  Age: 29 Year
  Sex: Female

DRUGS (10)
  1. SEVOFLURANE. [Suspect]
     Active Substance: SEVOFLURANE
     Indication: ASTHMA
  2. PREDNISOLONE. [Suspect]
     Active Substance: PREDNISOLONE
     Indication: ASTHMA
  3. MONTELUKAST [Suspect]
     Active Substance: MONTELUKAST SODIUM
     Indication: ASTHMA
  4. HYDROCORTISONE. [Suspect]
     Active Substance: HYDROCORTISONE
     Indication: ASTHMA
     Route: 042
  5. EPINEPHRINE. [Suspect]
     Active Substance: EPINEPHRINE
     Indication: ASTHMA
  6. MAGNESIUM SULFATE. [Suspect]
     Active Substance: MAGNESIUM SULFATE
     Indication: ASTHMA
     Route: 042
  7. THEOPHYLLINE [Suspect]
     Active Substance: THEOPHYLLINE ANHYDROUS
     Indication: ASTHMA
  8. SALBUTAMOL [Suspect]
     Active Substance: ALBUTEROL
     Indication: ASTHMA
     Route: 042
  9. ATROVENT [Suspect]
     Active Substance: IPRATROPIUM BROMIDE
     Indication: ASTHMA
  10. KETAMINE [Suspect]
     Active Substance: KETAMINE
     Indication: ASTHMA
     Route: 042

REACTIONS (18)
  - Asthma [Unknown]
  - Bronchospasm [Unknown]
  - Off label use [Unknown]
  - Respiratory rate increased [Unknown]
  - Respiratory acidosis [Unknown]
  - Dyspnoea [Unknown]
  - Blood pH decreased [Unknown]
  - Hypercapnia [Unknown]
  - Airway peak pressure increased [Unknown]
  - Blood bicarbonate decreased [Unknown]
  - Drug ineffective [Unknown]
  - PCO2 increased [Unknown]
  - Oxygen saturation decreased [Unknown]
  - Lung hyperinflation [Unknown]
  - Blood lactic acid increased [Unknown]
  - Wheezing [Unknown]
  - Cyanosis [Unknown]
  - PO2 decreased [Unknown]
